FAERS Safety Report 24299243 (Version 2)
Quarter: 2024Q3

REPORT INFORMATION
  Report Type: Spontaneous
  Country: JP (occurrence: None)
  Receive Date: 20240909
  Receipt Date: 20240912
  Transmission Date: 20241016
  Serious: Yes (Life-Threatening, Hospitalization, Disabling, Other)
  Sender: ASTRAZENECA
  Company Number: 2024A203813

PATIENT
  Age: 90 Year
  Sex: Female
  Weight: 60 kg

DRUGS (20)
  1. CRESTOR [Suspect]
     Active Substance: ROSUVASTATIN CALCIUM
     Indication: Dyslipidaemia
     Dosage: 2.5 MILLIGRAM, 1/DAY
     Route: 048
     Dates: end: 20170704
  2. XYLOCAINE [Suspect]
     Active Substance: LIDOCAINE HYDROCHLORIDE
     Indication: Neck pain
     Dosage: 5 MILLILITRE, 1/MONTH
     Dates: start: 20170130
  3. XYLOCAINE [Suspect]
     Active Substance: LIDOCAINE HYDROCHLORIDE
     Indication: Neck pain
  4. MIRABEGRON [Suspect]
     Active Substance: MIRABEGRON
     Indication: Hypertonic bladder
     Dosage: 50 MILLIGRAM, 1/DAY
     Route: 048
     Dates: start: 20161104, end: 20161215
  5. MIRABEGRON [Suspect]
     Active Substance: MIRABEGRON
     Indication: Product used for unknown indication
     Dosage: 50 MILLIGRAM, 1/DAY
     Route: 048
     Dates: start: 20161104, end: 20161215
  6. MIRABEGRON [Suspect]
     Active Substance: MIRABEGRON
     Indication: Hypertonic bladder
     Dosage: 50 MILLIGRAM, 1/DAY
     Route: 048
     Dates: start: 20170216, end: 20170704
  7. MIRABEGRON [Suspect]
     Active Substance: MIRABEGRON
     Indication: Product used for unknown indication
     Dosage: 50 MILLIGRAM, 1/DAY
     Route: 048
     Dates: start: 20170216, end: 20170704
  8. METHYLCOBALAMIN [Suspect]
     Active Substance: METHYLCOBALAMIN
     Indication: Vitamin B12 deficiency
     Dosage: 500 MICROGRAM, 3/DAY
     Route: 048
     Dates: start: 20170619
  9. ALDIOXA [Suspect]
     Active Substance: ALDIOXA
     Indication: Prophylaxis against gastrointestinal ulcer
     Dosage: 100 MILLIGRAM, 1/DAY
     Route: 048
     Dates: end: 20170704
  10. LEVOFLOXACIN [Suspect]
     Active Substance: LEVOFLOXACIN
     Indication: Cystitis
     Dosage: 500 MILLIGRAM, 1/DAY
     Route: 048
     Dates: start: 20170518, end: 20170523
  11. CHLORPHENESIN CARBAMATE [Suspect]
     Active Substance: CHLORPHENESIN CARBAMATE
     Indication: Analgesic therapy
     Dosage: 1 DOSAGE FORM, 3/DAY
     Route: 048
     Dates: start: 20170623, end: 20170704
  12. EMOXYPINE SUCCINATE [Suspect]
     Active Substance: EMOXYPINE SUCCINATE
     Indication: Neck pain
     Dosage: UNK
  13. DIPYRIDAMOLE [Suspect]
     Active Substance: DIPYRIDAMOLE
     Indication: Spinal stenosis
     Dosage: 25 MILLIGRAM, 2/DAY
     Route: 048
     Dates: end: 20170704
  14. FAMOTIDINE [Suspect]
     Active Substance: FAMOTIDINE
     Indication: Prophylaxis against gastrointestinal ulcer
     Dosage: 20 MILLIGRAM, 1/DAY
     Route: 048
  15. FLUNITRAZEPAM [Suspect]
     Active Substance: FLUNITRAZEPAM
     Indication: Insomnia
     Dosage: 1 MILLIGRAM, 1/DAY
     Route: 048
     Dates: end: 20170711
  16. VOLTAREN [Suspect]
     Active Substance: DICLOFENAC SODIUM
     Indication: Back pain
     Dosage: 25 MILLIGRAM, AS NEEDED25.0MG INTERMITTENT
     Dates: start: 20170605
  17. LIMAPROST [Suspect]
     Active Substance: LIMAPROST
     Indication: Spinal stenosis
     Dosage: 1 DOSAGE FORM, 3/DAY
     Route: 048
     Dates: end: 20170711
  18. CELECOXIB [Suspect]
     Active Substance: CELECOXIB
     Indication: Spinal stenosis
     Dosage: 100 MILLIGRAM, 2/DAY
     Route: 048
     Dates: end: 20170704
  19. ETIZOLAM [Suspect]
     Active Substance: ETIZOLAM
     Indication: Insomnia
     Dosage: 1 MILLIGRAM, 1/DAY
     Route: 048
     Dates: end: 20170704
  20. NEUROTROPIN [Suspect]
     Active Substance: NEUROTROPIN
     Indication: Back pain
     Dosage: 3.6 INTERNATIONAL UNIT, 1/MONTH
     Route: 058
     Dates: start: 20170130

REACTIONS (11)
  - C-reactive protein increased [Recovering/Resolving]
  - Tubulointerstitial nephritis [Recovering/Resolving]
  - Off label use [Unknown]
  - Condition aggravated [Recovered/Resolved]
  - Pyrexia [Recovered/Resolved]
  - Antineutrophil cytoplasmic antibody increased [Recovering/Resolving]
  - Gait disturbance [Recovered/Resolved]
  - White blood cell count increased [Recovering/Resolving]
  - Neck pain [Recovered/Resolved]
  - Drug-induced liver injury [Recovered/Resolved]
  - Back pain [Recovered/Resolved]

NARRATIVE: CASE EVENT DATE: 20170510
